FAERS Safety Report 7715760-1 (Version None)
Quarter: 2011Q3

REPORT INFORMATION
  Report Type: 
  Country: None (occurrence: None)
  Receive Date: 20110829
  Receipt Date: 20110816
  Transmission Date: 20111222
  Serious: Yes (Other)
  Sender: FDA-Public Use
  Company Number: JP-SANOFI-AVENTIS-2011SA052349

PATIENT
  Age: 62 Year
  Sex: Female

DRUGS (14)
  1. PREDNISOLONE [Suspect]
     Indication: IDIOPATHIC THROMBOCYTOPENIC PURPURA
     Dosage: 6-CYCLES OF R-CHOP ( RITUXIMAB, CYCLOPHOSPHAMIDE, ADRIAMYCIN, VINCRISTINE, PREDNISOLONE)
     Route: 065
  2. PREDNISOLONE [Suspect]
     Dosage: 1 MG/M2
     Route: 065
  3. PREDNISOLONE [Suspect]
     Dosage: 1 MG/M2
     Route: 065
  4. DANAZOL [Suspect]
     Indication: IDIOPATHIC THROMBOCYTOPENIC PURPURA
     Route: 065
  5. PREDNISOLONE [Suspect]
     Dosage: 1 MG/M2
     Route: 048
     Dates: start: 20090601
  6. DOXORUBICIN HCL [Suspect]
     Indication: DIFFUSE LARGE B-CELL LYMPHOMA
     Dosage: 6-CYCLES OF R-CHOP ( RITUXIMAB, CYCLOPHOSPHAMIDE, ADRIAMYCIN, VINCRISTINE, PREDNISOLONE)
     Route: 065
  7. PREDNISOLONE [Suspect]
     Indication: DIFFUSE LARGE B-CELL LYMPHOMA
     Dosage: 6-CYCLES OF R-CHOP ( RITUXIMAB, CYCLOPHOSPHAMIDE, ADRIAMYCIN, VINCRISTINE, PREDNISOLONE)
     Route: 065
  8. CYCLOPHOSPHAMIDE [Suspect]
     Indication: DIFFUSE LARGE B-CELL LYMPHOMA
     Dosage: 6-CYCLES OF R-CHOP ( RITUXIMAB, CYCLOPHOSPHAMIDE, ADRIAMYCIN, VINCRISTINE, PREDNISOLONE)
     Route: 065
  9. VINCRISTINE SULFATE [Suspect]
     Indication: DIFFUSE LARGE B-CELL LYMPHOMA
     Dosage: 6-CYCLES OF R-CHOP ( RITUXIMAB, CYCLOPHOSPHAMIDE, ADRIAMYCIN, VINCRISTINE, PREDNISOLONE)
     Route: 065
  10. RITUXIMAB [Suspect]
     Indication: DIFFUSE LARGE B-CELL LYMPHOMA
     Dosage: 6-CYCLES OF R-CHOP ( RITUXIMAB, CYCLOPHOSPHAMIDE, ADRIAMYCIN, VINCRISTINE, PREDNISOLONE)
     Route: 065
  11. RITUXIMAB [Suspect]
     Indication: IDIOPATHIC THROMBOCYTOPENIC PURPURA
     Dosage: 6-CYCLES OF R-CHOP ( RITUXIMAB, CYCLOPHOSPHAMIDE, ADRIAMYCIN, VINCRISTINE, PREDNISOLONE)
     Route: 065
  12. RITUXIMAB [Suspect]
     Dosage: 375 MG/M2 WEEKLY 4 TIMES
     Route: 065
     Dates: start: 20090801
  13. PREDNISOLONE [Suspect]
     Dosage: 1 MG/M2
     Route: 048
     Dates: start: 20090601
  14. RITUXIMAB [Suspect]
     Dosage: 375 MG/M2 WEEKLY 4 TIMES
     Route: 065
     Dates: start: 20090801

REACTIONS (6)
  - RASH PUSTULAR [None]
  - SKIN LESION [None]
  - HYPERGLYCAEMIA [None]
  - SKIN ULCER [None]
  - ERYTHEMA [None]
  - FUNGAL SKIN INFECTION [None]
